FAERS Safety Report 25025572 (Version 2)
Quarter: 2025Q1

REPORT INFORMATION
  Report Type: Spontaneous
  Country: CA (occurrence: CA)
  Receive Date: 20250228
  Receipt Date: 20250328
  Transmission Date: 20250409
  Serious: Yes (Other)
  Sender: NOVO NORDISK
  Company Number: CA-NOVOPROD-1345658

PATIENT
  Age: 70 Year
  Sex: Female
  Weight: 79.4 kg

DRUGS (4)
  1. WEGOVY [Suspect]
     Active Substance: SEMAGLUTIDE
     Indication: Weight control
     Dates: start: 20240725
  2. WEGOVY [Suspect]
     Active Substance: SEMAGLUTIDE
     Dates: end: 20241212
  3. ATORVASTATIN [Concomitant]
     Active Substance: ATORVASTATIN
     Indication: Product used for unknown indication
     Dosage: 10 MG, QD (1X10MG DAILY ORAL, SINCE 5 YEARS AGO)
     Route: 048
     Dates: start: 2020
  4. EZETIMIBE [Concomitant]
     Active Substance: EZETIMIBE
     Indication: Product used for unknown indication
     Dosage: 10 MG, QD (1X10MG ORAL DAILY, SINCE 5 YEARS AGO)
     Route: 048
     Dates: start: 2020

REACTIONS (6)
  - Cataract operation [Unknown]
  - Persistent depressive disorder [Unknown]
  - Weight increased [Unknown]
  - Weight loss poor [Unknown]
  - Drug ineffective [Unknown]
  - Liquid product physical issue [Unknown]
